FAERS Safety Report 25552335 (Version 1)
Quarter: 2025Q3

REPORT INFORMATION
  Report Type: Spontaneous
  Country: SA (occurrence: SA)
  Receive Date: 20250715
  Receipt Date: 20250715
  Transmission Date: 20251021
  Serious: Yes (Other)
  Sender: Unknown Manufacturer
  Company Number: SA-STRIDES ARCOLAB LIMITED-2025OS000041

PATIENT
  Age: 7 Year
  Sex: Male

DRUGS (1)
  1. OMEGA-3-ACID ETHYL ESTERS [Suspect]
     Active Substance: OMEGA-3-ACID ETHYL ESTERS
     Indication: Nutritional supplementation
     Route: 065

REACTIONS (6)
  - Hypercholesterolaemia [None]
  - Intentional overdose [Unknown]
  - Xanthoma [None]
  - Xanthoma [None]
  - Xanthoma [None]
  - Off label use [Unknown]
